FAERS Safety Report 6048757-0 (Version None)
Quarter: 2009Q1

REPORT INFORMATION
  Report Type: 
  Country: None (occurrence: None)
  Receive Date: 20090123
  Receipt Date: 20090115
  Transmission Date: 20090719
  Serious: Yes (Disabling, Other)
  Sender: FDA-Public Use
  Company Number: SE-ASTRAZENECA-2009SE00348

PATIENT
  Sex: Female

DRUGS (1)
  1. PLENDIL [Suspect]
     Indication: HYPERTENSION
     Route: 048

REACTIONS (3)
  - GINGIVAL SWELLING [None]
  - ORAL PAIN [None]
  - TOOTH LOSS [None]
